FAERS Safety Report 9515637 (Version 1)
Quarter: 2013Q3

REPORT INFORMATION
  Report Type: Spontaneous
  Country: US (occurrence: US)
  Receive Date: 20130911
  Receipt Date: 20130911
  Transmission Date: 20140515
  Serious: Yes (Other)
  Sender: FDA-Public Use
  Company Number: US-BAYER-2013-108320

PATIENT
  Sex: Female

DRUGS (2)
  1. YASMIN [Suspect]
     Dosage: UNK
     Dates: start: 201110, end: 201111
  2. BEYAZ [Suspect]
     Dosage: UNK
     Dates: start: 201110, end: 201111

REACTIONS (8)
  - Thrombosis [None]
  - Colitis ischaemic [None]
  - Anxiety [None]
  - General physical health deterioration [None]
  - Emotional distress [None]
  - Pain [None]
  - Injury [None]
  - Pain [None]
